FAERS Safety Report 4844593-9 (Version None)
Quarter: 2005Q4

REPORT INFORMATION
  Report Type: 
  Country: None (occurrence: None)
  Receive Date: 20051125
  Receipt Date: 20051109
  Transmission Date: 20060501
  Serious: Yes (Hospitalization)
  Sender: FDA-Public Use
  Company Number: US200511000073

PATIENT
  Sex: Female

DRUGS (7)
  1. FORTEO [Suspect]
     Dosage: D/F
     Dates: start: 20050501
  2. FORTEO PEN (FORTEO PEN) PEN, DISPOSABLE [Concomitant]
  3. CALCIUM (CALCIUM) [Concomitant]
  4. WARFARIN SODIUM [Concomitant]
  5. ASPIRIN [Concomitant]
  6. POTASSIUM (POTASSIUM) [Concomitant]
  7. CELEBREX [Concomitant]

REACTIONS (3)
  - BLOOD CALCIUM INCREASED [None]
  - PELVIC FRACTURE [None]
  - PHARMACEUTICAL PRODUCT COMPLAINT [None]
